FAERS Safety Report 4360469-8 (Version None)
Quarter: 2004Q2

REPORT INFORMATION
  Report Type: 
  Country: None (occurrence: None)
  Receive Date: 20040514
  Receipt Date: 20040505
  Transmission Date: 20050107
  Serious: Yes (Hospitalization)
  Sender: FDA-Public Use
  Company Number: 2004UW09577

PATIENT
  Age: 63 Year
  Sex: Female

DRUGS (6)
  1. SEROQUEL [Suspect]
     Indication: HALLUCINATION, TACTILE
     Dosage: 600 MG DAILY PO
     Route: 048
  2. SEROQUEL [Suspect]
     Indication: POST-TRAUMATIC STRESS DISORDER
     Dosage: 600 MG DAILY PO
     Route: 048
  3. SEROQUEL [Suspect]
     Indication: PSYCHOTIC DISORDER
     Dosage: 600 MG DAILY PO
     Route: 048
  4. LEXAPRO [Concomitant]
  5. NORVASC [Concomitant]
  6. DIOVAN [Concomitant]

REACTIONS (2)
  - DIABETES MELLITUS [None]
  - DIABETIC COMA [None]
